FAERS Safety Report 9984418 (Version 1)
Quarter: 2014Q1

REPORT INFORMATION
  Report Type: Report from Study
  Country: US (occurrence: US)
  Receive Date: 20140307
  Receipt Date: 20140307
  Transmission Date: 20141002
  Serious: No
  Sender: FDA-Public Use
  Company Number: US-ABBVIE-13P-163-1182511-00

PATIENT
  Age: 53 Year
  Sex: Female
  Weight: 61.29 kg

DRUGS (30)
  1. HUMIRA [Suspect]
     Indication: PSORIATIC ARTHROPATHY
     Dosage: NO LOADING DOSE
     Route: 058
     Dates: start: 20131127, end: 20131211
  2. DIOVAN [Concomitant]
     Indication: PRODUCT USED FOR UNKNOWN INDICATION
  3. HYDROCHLOROTHIAZIDE [Concomitant]
     Indication: PRODUCT USED FOR UNKNOWN INDICATION
  4. FOLIC ACID [Concomitant]
     Indication: PRODUCT USED FOR UNKNOWN INDICATION
  5. BYSTOLIC [Concomitant]
     Indication: PRODUCT USED FOR UNKNOWN INDICATION
  6. BYSTOLIC [Concomitant]
     Indication: PRODUCT USED FOR UNKNOWN INDICATION
  7. CYMBALTA [Concomitant]
     Indication: PRODUCT USED FOR UNKNOWN INDICATION
  8. ASA [Concomitant]
     Indication: PRODUCT USED FOR UNKNOWN INDICATION
  9. DIAZEPAM [Concomitant]
     Indication: PRODUCT USED FOR UNKNOWN INDICATION
  10. FLEXERIL [Concomitant]
     Indication: PRODUCT USED FOR UNKNOWN INDICATION
  11. DOXEPIN [Concomitant]
     Indication: PRODUCT USED FOR UNKNOWN INDICATION
  12. HYDROXYZINE [Concomitant]
     Indication: PRODUCT USED FOR UNKNOWN INDICATION
  13. VALACYCLOVIR [Concomitant]
     Indication: PRODUCT USED FOR UNKNOWN INDICATION
  14. OXYCODONE [Concomitant]
     Indication: PRODUCT USED FOR UNKNOWN INDICATION
  15. TRIAMINICIN [Concomitant]
     Indication: PRODUCT USED FOR UNKNOWN INDICATION
  16. CLOBETASOL TINEA [Concomitant]
     Indication: PRODUCT USED FOR UNKNOWN INDICATION
  17. DESONIDE [Concomitant]
     Indication: PRODUCT USED FOR UNKNOWN INDICATION
  18. POMEGRANATE PLUS [Concomitant]
     Indication: PRODUCT USED FOR UNKNOWN INDICATION
  19. TAURIN [Concomitant]
     Indication: PRODUCT USED FOR UNKNOWN INDICATION
  20. VITAMIN D [Concomitant]
     Indication: PRODUCT USED FOR UNKNOWN INDICATION
  21. QUERCETIN [Concomitant]
     Indication: PRODUCT USED FOR UNKNOWN INDICATION
  22. SUPER OMEGA 3 [Concomitant]
     Indication: PRODUCT USED FOR UNKNOWN INDICATION
  23. EYE FLORA [Concomitant]
     Indication: PRODUCT USED FOR UNKNOWN INDICATION
  24. MEGA GREEN TEA EXTRACT MEGA [Concomitant]
     Indication: PRODUCT USED FOR UNKNOWN INDICATION
  25. COQ10 [Concomitant]
     Indication: PRODUCT USED FOR UNKNOWN INDICATION
  26. THEANINE [Concomitant]
     Indication: PRODUCT USED FOR UNKNOWN INDICATION
  27. VITAMIN C [Concomitant]
     Indication: PRODUCT USED FOR UNKNOWN INDICATION
  28. LVR [Concomitant]
     Indication: PRODUCT USED FOR UNKNOWN INDICATION
  29. DHEA [Concomitant]
     Indication: PRODUCT USED FOR UNKNOWN INDICATION
  30. MAGNESIUM CITRATE [Concomitant]
     Indication: PRODUCT USED FOR UNKNOWN INDICATION

REACTIONS (1)
  - Psoriasis [Not Recovered/Not Resolved]
